FAERS Safety Report 9655281 (Version 2)
Quarter: 2013Q4

REPORT INFORMATION
  Report Type: Spontaneous
  Country: US (occurrence: US)
  Receive Date: 20131029
  Receipt Date: 20131126
  Transmission Date: 20140711
  Serious: No
  Sender: FDA-Public Use
  Company Number: US-TEVA-441059USA

PATIENT
  Age: 16 Year
  Sex: Male

DRUGS (4)
  1. CLARAVIS [Suspect]
     Route: 048
     Dates: start: 20130524, end: 20130802
  2. CLARAVIS [Suspect]
     Dates: start: 20130802, end: 20130913
  3. CLARAVIS [Suspect]
     Dates: start: 20130913, end: 20131013
  4. CLARAVIS [Suspect]
     Dates: start: 2013

REACTIONS (2)
  - Lip dry [Recovered/Resolved]
  - Cheilitis [Recovered/Resolved]
